FAERS Safety Report 6350770-0 (Version None)
Quarter: 2009Q3

REPORT INFORMATION
  Report Type: 
  Country: None (occurrence: None)
  Receive Date: 20090911
  Receipt Date: 20090622
  Transmission Date: 20100115
  Serious: No
  Sender: FDA-Public Use
  Company Number: US-ABBOTT-07P-163-0369158-00

PATIENT
  Sex: Female
  Weight: 76.272 kg

DRUGS (10)
  1. HUMIRA [Suspect]
     Indication: CROHN'S DISEASE
     Dosage: STARTER PACK
     Route: 058
     Dates: start: 20070511
  2. RISEDRONATE SODIUM [Concomitant]
     Indication: DRUG USE FOR UNKNOWN INDICATION
  3. CRYSTALLINE VIT B12 INJ [Concomitant]
     Indication: DRUG USE FOR UNKNOWN INDICATION
  4. MERCAPTOPURINE [Concomitant]
     Indication: DRUG USE FOR UNKNOWN INDICATION
  5. CALCIUM PLUS D [Concomitant]
     Indication: DRUG USE FOR UNKNOWN INDICATION
  6. IRON [Concomitant]
     Indication: DRUG USE FOR UNKNOWN INDICATION
  7. ASCORBIC ACID [Concomitant]
     Indication: DRUG USE FOR UNKNOWN INDICATION
  8. BIOTIN [Concomitant]
     Indication: DRUG USE FOR UNKNOWN INDICATION
  9. LOMOTIL [Concomitant]
     Indication: DRUG USE FOR UNKNOWN INDICATION
  10. PHENERGAN [Concomitant]
     Indication: DRUG USE FOR UNKNOWN INDICATION

REACTIONS (1)
  - INCORRECT DOSE ADMINISTERED [None]
